FAERS Safety Report 15955261 (Version 5)
Quarter: 2019Q3

REPORT INFORMATION
  Report Type: Report from Study
  Country: FR (occurrence: FR)
  Receive Date: 20190213
  Receipt Date: 20190920
  Transmission Date: 20191004
  Serious: Yes (Other)
  Sender: FDA-Public Use
  Company Number: FR-ROCHE-2261602

PATIENT
  Age: 55 Year
  Sex: Male
  Weight: 104 kg

DRUGS (23)
  1. VALACICLOVIR [Concomitant]
     Active Substance: VALACYCLOVIR HYDROCHLORIDE
     Route: 048
     Dates: start: 20181105, end: 20190218
  2. NIVESTIM [Concomitant]
     Active Substance: FILGRASTIM
     Indication: NEUTROPENIA
     Route: 058
     Dates: start: 20181223, end: 20181227
  3. NIVESTIM [Concomitant]
     Active Substance: FILGRASTIM
     Route: 058
     Dates: start: 20190202, end: 20190205
  4. RITUXIMAB. [Suspect]
     Active Substance: RITUXIMAB
     Indication: DIFFUSE LARGE B-CELL LYMPHOMA
     Dosage: DATE OF MOST RECENT DOSE OF DOXORUBICIN PRIOR TO SAE ONSET ON 08/JAN/2019 (750 MG)
     Route: 042
     Dates: start: 20181105
  5. ALLOPURINOL. [Concomitant]
     Active Substance: ALLOPURINOL
     Indication: CALCULUS URINARY
     Route: 048
  6. PANTOPRAZOLE [Concomitant]
     Active Substance: PANTOPRAZOLE
     Indication: GASTROOESOPHAGEAL REFLUX DISEASE
     Route: 048
     Dates: start: 20181105
  7. PARACETAMOL [Concomitant]
     Active Substance: ACETAMINOPHEN
     Indication: NEPHRECTOMY
     Route: 065
     Dates: start: 20190503, end: 20190506
  8. TERBUTALINE [Concomitant]
     Active Substance: TERBUTALINE
     Indication: NEPHRECTOMY
     Route: 065
     Dates: start: 20190503, end: 20190504
  9. ACTISKENAN [Concomitant]
     Active Substance: MORPHINE SULFATE
     Indication: NEPHRECTOMY
     Route: 065
     Dates: start: 20190503, end: 20190503
  10. BACTRIM [Concomitant]
     Active Substance: SULFAMETHOXAZOLE\TRIMETHOPRIM
     Indication: INFECTION
     Route: 048
     Dates: start: 20181106, end: 20190312
  11. INNOHEP [Concomitant]
     Active Substance: TINZAPARIN SODIUM
     Indication: PULMONARY EMBOLISM
     Route: 058
     Dates: start: 20181203
  12. DOXORUBICIN [Suspect]
     Active Substance: DOXORUBICIN
     Indication: DIFFUSE LARGE B-CELL LYMPHOMA
     Dosage: DATE OF MOST RECENT DOSE OF DOXORUBICIN PRIOR TO SAE ONSET 08/JAN/2019 (100 MG)
     Route: 042
     Dates: start: 20181105
  13. PREDNISONE. [Suspect]
     Active Substance: PREDNISONE
     Indication: DIFFUSE LARGE B-CELL LYMPHOMA
     Dosage: ON DAYS 1-5 OF EVERY 21-DAY CYCLE?DATE OF MOST RECENT DOSE OF PREDNISONE ON 12/JAN/2019 (100 MG)
     Route: 048
     Dates: start: 20181105
  14. BLINDED POLATUZUMAB VEDOTIN [Suspect]
     Active Substance: POLATUZUMAB VEDOTIN
     Indication: DIFFUSE LARGE B-CELL LYMPHOMA
     Dosage: DATE OF MOST RECENT DOSE OF BLINDED POLATUZUMAB VEDOTIN PRIOR TO SAE ONSET WAS ON 08/JAN/2019.?ON DA
     Route: 042
     Dates: start: 20181106
  15. FLUCONAZOLE. [Concomitant]
     Active Substance: FLUCONAZOLE
     Indication: CANDIDA INFECTION
     Route: 048
     Dates: start: 20181204
  16. ZOPHREN [ONDANSETRON] [Concomitant]
     Active Substance: ONDANSETRON
     Indication: NAUSEA
     Route: 048
     Dates: start: 20190109, end: 20190315
  17. PRIMPERAN [Concomitant]
     Active Substance: METOCLOPRAMIDE HYDROCHLORIDE
     Indication: NAUSEA
     Route: 048
     Dates: start: 20190128, end: 20190515
  18. BLINDED VINCRISTINE [Suspect]
     Active Substance: VINCRISTINE
     Indication: DIFFUSE LARGE B-CELL LYMPHOMA
     Dosage: DATE OF MOST RECENT DOSE OF BLINDED VINCRISTINE PRIOR TO SAE ONSET WAS ON 08/JAN/2019.?ON DAY 1 OF E
     Route: 042
     Dates: start: 20181105
  19. NIVESTIM [Concomitant]
     Active Substance: FILGRASTIM
     Route: 058
     Dates: start: 20190223, end: 20190227
  20. NEFOPAM [Concomitant]
     Active Substance: NEFOPAM
     Route: 065
     Dates: start: 20190504, end: 20190504
  21. CYCLOPHOSPHAMIDE. [Suspect]
     Active Substance: CYCLOPHOSPHAMIDE
     Indication: DIFFUSE LARGE B-CELL LYMPHOMA
     Dosage: DATE OF MOST RECENT DOSE OF CYCLOPHOSPHAMIDE PRIOR TO SAE ONSET 08/JAN/2019 (1500 MG)
     Route: 042
     Dates: start: 20181105
  22. SPECIAFOLDINE [Concomitant]
     Active Substance: FOLIC ACID
     Route: 048
     Dates: start: 20181106, end: 20190312
  23. ATARAX [Concomitant]
     Active Substance: HYDROXYZINE HYDROCHLORIDE
     Route: 065
     Dates: start: 20190505, end: 20190505

REACTIONS (1)
  - Papillary renal cell carcinoma [Recovered/Resolved]

NARRATIVE: CASE EVENT DATE: 20190125
